FAERS Safety Report 7288554-1 (Version None)
Quarter: 2011Q1

REPORT INFORMATION
  Report Type: 
  Country: None (occurrence: None)
  Receive Date: 20110207
  Receipt Date: 20110207
  Transmission Date: 20110831
  Serious: Yes (Life-Threatening, Hospitalization)
  Sender: FDA-Public Use
  Company Number: None

PATIENT
  Age: 43 Year
  Sex: Male
  Weight: 68 kg

DRUGS (1)
  1. LIDOCAINE HYDROCHLORIDE W/ EPINEPHRINE 1:100,000 INJ [Suspect]
     Dosage: 10CC 1% LIDOCAINE W EPINEPHRIN SQ
     Dates: start: 20110113, end: 20110113

REACTIONS (2)
  - PULSELESS ELECTRICAL ACTIVITY [None]
  - HYPOTENSION [None]
